FAERS Safety Report 7355356-7 (Version None)
Quarter: 2011Q1

REPORT INFORMATION
  Report Type: 
  Country: None (occurrence: None)
  Receive Date: 20110316
  Receipt Date: 20110309
  Transmission Date: 20110831
  Serious: Yes (Hospitalization)
  Sender: FDA-Public Use
  Company Number: FR-ROCHE-759650

PATIENT
  Sex: Male
  Weight: 74 kg

DRUGS (4)
  1. CERTICAN [Suspect]
     Dosage: FREQUENCY: PER DAY
     Route: 002
     Dates: start: 20100701
  2. MYCOPHENOLATE MOFETIL [Suspect]
     Dosage: FREQUENCY: UNSPECIFIED.
     Route: 002
     Dates: start: 20100514
  3. SOLUPRED [Suspect]
     Dosage: 5 MG X 2/DAY
     Route: 048
     Dates: start: 20100514
  4. IRON [Concomitant]
     Dosage: SUPPLEMENTATION

REACTIONS (1)
  - HYPERTHYROIDISM [None]
